FAERS Safety Report 11626217 (Version 2)
Quarter: 2015Q4

REPORT INFORMATION
  Report Type: Report from Study
  Country: US (occurrence: US)
  Receive Date: 20151013
  Receipt Date: 20151123
  Transmission Date: 20160304
  Serious: Yes (Other)
  Sender: FDA-Public Use
  Company Number: US-AMGEN-USASL2015105827

PATIENT
  Age: 69 Year
  Sex: Female

DRUGS (1)
  1. ENBREL [Suspect]
     Active Substance: ETANERCEPT
     Indication: RHEUMATOID ARTHRITIS
     Dosage: UNK UNK, UNK
     Route: 065
     Dates: start: 2012

REACTIONS (13)
  - Renal disorder [Unknown]
  - Stress [Unknown]
  - Injection site discomfort [Unknown]
  - Fall [Unknown]
  - Tremor [Unknown]
  - Pain [Unknown]
  - Wheelchair user [Unknown]
  - Psoriasis [Unknown]
  - Needle issue [Unknown]
  - Femur fracture [Unknown]
  - Device issue [Unknown]
  - Underdose [Unknown]
  - Surgery [Unknown]

NARRATIVE: CASE EVENT DATE: 20120701
